FAERS Safety Report 4849911-3 (Version None)
Quarter: 2005Q4

REPORT INFORMATION
  Report Type: 
  Country: None (occurrence: None)
  Receive Date: 20051209
  Receipt Date: 20050818
  Transmission Date: 20060501
  Serious: Yes (Hospitalization)
  Sender: FDA-Public Use
  Company Number: US-MERCK-0508USA03433

PATIENT
  Age: 45 Year
  Sex: Male
  Weight: 90 kg

DRUGS (23)
  1. VIOXX [Suspect]
     Indication: OSTEOARTHRITIS
     Route: 048
     Dates: start: 19990101, end: 20040101
  2. NEURONTIN [Concomitant]
     Indication: NEURALGIA
     Route: 065
  3. ASPIRIN [Concomitant]
     Route: 065
     Dates: start: 19800101
  4. FIORINAL [Concomitant]
     Route: 065
  5. TYLENOL (CAPLET) [Concomitant]
     Indication: HEADACHE
     Route: 065
     Dates: start: 19800101
  6. TYLENOL (CAPLET) [Concomitant]
     Indication: BACK PAIN
     Route: 065
     Dates: start: 19800101
  7. LIPITOR [Concomitant]
     Indication: HYPERLIPIDAEMIA
     Route: 065
     Dates: start: 19800101
  8. LANOXIN [Concomitant]
     Indication: ANGINA PECTORIS
     Route: 065
     Dates: start: 19800101, end: 20000101
  9. CATAPRES [Concomitant]
     Route: 065
  10. DIOVAN [Concomitant]
     Indication: HYPERTENSION
     Route: 065
     Dates: start: 19800101
  11. PROZAC [Concomitant]
     Indication: DEPRESSION
     Route: 065
     Dates: start: 19700101
  12. AXID [Concomitant]
     Route: 065
  13. ADVIL [Concomitant]
     Indication: HEADACHE
     Route: 065
     Dates: start: 19800101
  14. ADVIL [Concomitant]
     Indication: BACK PAIN
     Route: 065
     Dates: start: 19800101
  15. MOTRIN [Concomitant]
     Indication: HEADACHE
     Route: 065
     Dates: start: 19800101
  16. MOTRIN [Concomitant]
     Indication: BACK PAIN
     Route: 065
     Dates: start: 19800101
  17. NAPROXEN [Concomitant]
     Indication: HEADACHE
     Route: 065
     Dates: start: 19800101
  18. NAPROXEN [Concomitant]
     Indication: BACK PAIN
     Route: 065
     Dates: start: 19800101
  19. IMITREX [Concomitant]
     Indication: HEADACHE
     Route: 065
     Dates: start: 19800101
  20. IMITREX [Concomitant]
     Indication: BACK PAIN
     Route: 065
     Dates: start: 19800101
  21. ZOCOR [Concomitant]
     Route: 065
     Dates: start: 19800101
  22. [THERAPY UNSPECIFIED] [Concomitant]
     Route: 065
     Dates: start: 19800101
  23. GINSENG [Concomitant]
     Route: 065
     Dates: start: 19800101

REACTIONS (18)
  - ANAEMIA [None]
  - ANGINA PECTORIS [None]
  - ARTERIOSCLEROSIS CORONARY ARTERY [None]
  - ARTHROPATHY [None]
  - BACK DISORDER [None]
  - CARDIOMEGALY [None]
  - CARDIOVASCULAR DISORDER [None]
  - CHEST PAIN [None]
  - CONSTIPATION [None]
  - CORONARY ARTERY DISEASE [None]
  - CORONARY ARTERY STENOSIS [None]
  - DIVERTICULUM [None]
  - DYSPNOEA [None]
  - ERECTILE DYSFUNCTION [None]
  - HEART RATE DECREASED [None]
  - LIMB INJURY [None]
  - MULTI-ORGAN DISORDER [None]
  - MYOCARDIAL ISCHAEMIA [None]
